FAERS Safety Report 15033056 (Version 2)
Quarter: 2018Q3

REPORT INFORMATION
  Report Type: Spontaneous
  Country: US (occurrence: US)
  Receive Date: 20180619
  Receipt Date: 20180919
  Transmission Date: 20181010
  Serious: No
  Sender: FDA-Public Use
  Company Number: US-AVADEL SPECIALTY PHARMACEUTICALS, LLC-2018AVA00068

PATIENT
  Age: 84 Year
  Sex: Male
  Weight: 64.4 kg

DRUGS (7)
  1. NOCTIVA [Suspect]
     Active Substance: DESMOPRESSIN ACETATE
     Dosage: 0.83 ?G IN EITHER THE RIGHT OR LEFT NOSTRIL, 1X/DAY APPROXIMATELY 30 MINUTES PRIOR TO BEDTIME
     Route: 045
     Dates: start: 2018
  2. METOPROLOL. [Concomitant]
     Active Substance: METOPROLOL
  3. NOCTIVA [Suspect]
     Active Substance: DESMOPRESSIN ACETATE
     Indication: NOCTURIA
     Dosage: 0.83 ?G, 1X/DAY 30 MINUTES BEFORE BED
     Route: 045
     Dates: start: 20180525, end: 20180529
  4. ATORVASTATIN [Concomitant]
     Active Substance: ATORVASTATIN
  5. LOSARTAN. [Concomitant]
     Active Substance: LOSARTAN
  6. VITAMIN D [Concomitant]
     Active Substance: CHOLECALCIFEROL
  7. AMLODIPINE [Concomitant]
     Active Substance: AMLODIPINE BESYLATE

REACTIONS (6)
  - Nasal discomfort [Recovered/Resolved]
  - Malaise [Unknown]
  - Fall [Recovered/Resolved]
  - Headache [Recovered/Resolved]
  - Rhinorrhoea [Recovered/Resolved]
  - Dizziness [Recovered/Resolved]

NARRATIVE: CASE EVENT DATE: 2018
